FAERS Safety Report 21284833 (Version 1)
Quarter: 2022Q3

REPORT INFORMATION
  Report Type: Spontaneous
  Country: US (occurrence: US)
  Receive Date: 20220902
  Receipt Date: 20220902
  Transmission Date: 20221026
  Serious: No
  Sender: FDA-Public Use
  Company Number: ENDG22-01542

PATIENT
  Age: 42 Year
  Sex: Female
  Weight: 70.31 kg

DRUGS (3)
  1. PREDNISONE [Suspect]
     Active Substance: PREDNISONE
     Indication: Arthritis reactive
     Dosage: 20 MG (TAPER), UNKNOWN
     Route: 065
     Dates: start: 20210916
  2. PREDNISONE [Suspect]
     Active Substance: PREDNISONE
     Dosage: 20 MG (TAPER), UNKNOWN
     Route: 065
     Dates: start: 20220120
  3. HYDROXYCHLOROQUINE DIPHOSPHATE [Concomitant]
     Active Substance: HYDROXYCHLOROQUINE DIPHOSPHATE
     Indication: Arthritis reactive
     Dosage: 200 MG, OD
     Route: 065
     Dates: start: 20220120

REACTIONS (3)
  - Arthritis reactive [Recovering/Resolving]
  - Condition aggravated [Recovering/Resolving]
  - Therapeutic product effect incomplete [Unknown]

NARRATIVE: CASE EVENT DATE: 20210901
